FAERS Safety Report 24401139 (Version 3)
Quarter: 2025Q3

REPORT INFORMATION
  Report Type: Report from Study
  Country: US (occurrence: US)
  Receive Date: 20241006
  Receipt Date: 20250920
  Transmission Date: 20251021
  Serious: No
  Sender: ABBVIE
  Company Number: US-ABBVIE-5947264

PATIENT
  Age: 80 Year
  Sex: Female
  Weight: 81 kg

DRUGS (3)
  1. VENCLEXTA [Suspect]
     Active Substance: VENETOCLAX
     Indication: Mantle cell lymphoma
     Route: 048
     Dates: start: 20240703
  2. BRUKINSA [Concomitant]
     Active Substance: ZANUBRUTINIB
     Indication: Lymphoma
     Dosage: ONE IN MORNING
  3. LASIX [Concomitant]
     Active Substance: FUROSEMIDE
     Indication: Fluid retention

REACTIONS (13)
  - Lymphoedema [Not Recovered/Not Resolved]
  - Fluid retention [Not Recovered/Not Resolved]
  - Blood viscosity decreased [Unknown]
  - Fatigue [Unknown]
  - Emotional disorder [Unknown]
  - Asthenia [Unknown]
  - Arthropathy [Unknown]
  - Fall [Unknown]
  - Contusion [Unknown]
  - Off label use [Unknown]
  - Anaemia [Unknown]
  - Depression [Unknown]
  - Blood pressure abnormal [Unknown]

NARRATIVE: CASE EVENT DATE: 20240101
